FAERS Safety Report 21855452 (Version 2)
Quarter: 2023Q1

REPORT INFORMATION
  Report Type: Report from Study
  Country: CA (occurrence: CA)
  Receive Date: 20230112
  Receipt Date: 20230127
  Transmission Date: 20230417
  Serious: Yes (Other)
  Sender: FDA-Public Use
  Company Number: CA-TAKEDA-2023TUS003560

PATIENT
  Age: 44 Year
  Sex: Male

DRUGS (1)
  1. VEDOLIZUMAB [Suspect]
     Active Substance: VEDOLIZUMAB
     Indication: Crohn^s disease
     Dosage: 300 MILLIGRAM
     Route: 042
     Dates: start: 20220608, end: 20221117

REACTIONS (6)
  - Blindness unilateral [Unknown]
  - Decreased immune responsiveness [Unknown]
  - Discouragement [Unknown]
  - Infection [Unknown]
  - Loss of personal independence in daily activities [Unknown]
  - Visual impairment [Unknown]
